FAERS Safety Report 21496335 (Version 1)
Quarter: 2022Q4

REPORT INFORMATION
  Report Type: Report from Study
  Country: US (occurrence: US)
  Receive Date: 20221022
  Receipt Date: 20221022
  Transmission Date: 20230113
  Serious: No
  Sender: FDA-Public Use
  Company Number: US-ABBVIE-4148036

PATIENT
  Sex: Female

DRUGS (4)
  1. HUMIRA [Suspect]
     Active Substance: ADALIMUMAB
     Indication: Psoriatic arthropathy
     Dosage: CITRATE FREE, FORM STRENGTH: 40 MG
     Route: 058
  2. Covid-19 vaccine [Concomitant]
     Indication: COVID-19 immunisation
     Dosage: FIRST DOSE, ONCE
     Route: 030
     Dates: start: 2021, end: 2021
  3. Covid-19 vaccine [Concomitant]
     Indication: COVID-19 immunisation
     Dosage: SECOND DOSE, ONCE
     Route: 030
     Dates: start: 2021, end: 2021
  4. Covid-19 vaccine [Concomitant]
     Indication: COVID-19 immunisation
     Dosage: THIRD DOSE OR BOOSTER DOSE, ONCE
     Route: 030
     Dates: start: 2022, end: 2022

REACTIONS (2)
  - Psoriatic arthropathy [Unknown]
  - Therapeutic response shortened [Unknown]
